FAERS Safety Report 20472862 (Version 2)
Quarter: 2022Q1

REPORT INFORMATION
  Report Type: Report from Study
  Country: GR (occurrence: GR)
  Receive Date: 20220215
  Receipt Date: 20220307
  Transmission Date: 20220423
  Serious: Yes (Hospitalization)
  Sender: FDA-Public Use
  Company Number: GR-ABBVIE-22K-066-4276022-00

PATIENT
  Sex: Male
  Weight: 75 kg

DRUGS (3)
  1. CARBIDOPA\LEVODOPA [Suspect]
     Active Substance: CARBIDOPA\LEVODOPA
     Indication: Parkinson^s disease
     Dosage: MORNING DOSE: 12.0ML; CONTINUOUS RATE: 3.4ML/H; EXTRA DOSE: 1.2ML
     Route: 050
     Dates: start: 20180116, end: 20220210
  2. CARBIDOPA\LEVODOPA [Suspect]
     Active Substance: CARBIDOPA\LEVODOPA
     Dosage: MORNING DOSE: 12.0ML; CONTINUOUS RATE: 3.4ML/H; EXTRA DOSE:1.2ML
     Route: 050
     Dates: start: 20220301
  3. EXELON [Concomitant]
     Active Substance: RIVASTIGMINE TARTRATE
     Indication: Product used for unknown indication
     Dosage: 4.5MG
     Route: 048

REACTIONS (2)
  - Respiratory tract infection [Not Recovered/Not Resolved]
  - Device issue [Unknown]
